FAERS Safety Report 8702470 (Version 2)
Quarter: 2012Q4

REPORT INFORMATION
  Report Type: Report from Study
  Country: US (occurrence: US)
  Receive Date: 20120803
  Receipt Date: 20120920
  Transmission Date: 20130627
  Serious: Yes (Death)
  Sender: FDA-Public Use
  Company Number: US-PFIZER INC-2012186851

PATIENT
  Age: 19 Year
  Sex: Female

DRUGS (3)
  1. CISPLATIN [Suspect]
     Indication: MEDULLOBLASTOMA
     Dosage: 8 consolidation cycles
  2. VINCRISTINE SULFATE [Suspect]
     Indication: MEDULLOBLASTOMA
     Dosage: weekly, followed by 8 consolidation cycles
  3. CYCLOPHOSPHAMIDE [Suspect]
     Indication: MEDULLOBLASTOMA
     Dosage: 8 consolidation cycles

REACTIONS (2)
  - Second primary malignancy [Fatal]
  - Chronic myeloid leukaemia [Fatal]
